FAERS Safety Report 19416869 (Version 3)
Quarter: 2021Q4

REPORT INFORMATION
  Report Type: Spontaneous
  Country: JP (occurrence: JP)
  Receive Date: 20210614
  Receipt Date: 20211020
  Transmission Date: 20220303
  Serious: Yes (Life-Threatening, Hospitalization)
  Sender: FDA-Public Use
  Company Number: JP-ABBVIE-21K-087-3943653-00

PATIENT
  Age: 74 Year
  Sex: Male
  Weight: 82.2 kg

DRUGS (2)
  1. SKYRIZI [Suspect]
     Active Substance: RISANKIZUMAB-RZAA
     Indication: Psoriasis
     Route: 058
     Dates: start: 20210212, end: 20210212
  2. SKYRIZI [Suspect]
     Active Substance: RISANKIZUMAB-RZAA
     Route: 058
     Dates: start: 20210312, end: 20210312

REACTIONS (2)
  - Malignant melanoma [Recovering/Resolving]
  - Heavy exposure to ultraviolet light [Unknown]

NARRATIVE: CASE EVENT DATE: 20210604
